FAERS Safety Report 22633045 (Version 2)
Quarter: 2023Q2

REPORT INFORMATION
  Report Type: Report from Study
  Country: EG (occurrence: EG)
  Receive Date: 20230623
  Receipt Date: 20230630
  Transmission Date: 20230721
  Serious: Yes (Other)
  Sender: FDA-Public Use
  Company Number: EG-002147023-NVSC2023EG139861

PATIENT
  Age: 24 Year
  Sex: Male

DRUGS (3)
  1. COSENTYX [Suspect]
     Active Substance: SECUKINUMAB
     Indication: Psoriatic arthropathy
     Dosage: 1 DOSAGE FORM, Q2W ((THE LAST TAKEN DOSE BEFORE GOING BACK ON COSENTYX) (PATIENT IS STABLE ON THIS D
     Route: 058
     Dates: start: 20230201, end: 20230215
  2. COSENTYX [Suspect]
     Active Substance: SECUKINUMAB
     Dosage: 1 DOSAGE FORM, Q2W
     Route: 058
     Dates: start: 20230617
  3. KERELLA [Concomitant]
     Indication: Dry skin prophylaxis
     Dosage: UNK, PRN (AS NEEDED AT BED TIME)
     Route: 065
     Dates: start: 2016

REACTIONS (5)
  - Mental disorder [Recovering/Resolving]
  - Symptom recurrence [Recovering/Resolving]
  - Skin exfoliation [Recovering/Resolving]
  - Nasopharyngitis [Recovered/Resolved]
  - Inappropriate schedule of product administration [Unknown]

NARRATIVE: CASE EVENT DATE: 20230201
